FAERS Safety Report 18269812 (Version 1)
Quarter: 2020Q3

REPORT INFORMATION
  Report Type: Spontaneous
  Country: US (occurrence: US)
  Receive Date: 20200915
  Receipt Date: 20200915
  Transmission Date: 20201103
  Serious: No
  Sender: FDA-Public Use
  Company Number: US-NEXGEN PHARMA, INC.-2090755

PATIENT
  Age: 22 Year
  Sex: Female

DRUGS (1)
  1. CHENODAL [Suspect]
     Active Substance: CHENODIOL
     Route: 048
     Dates: start: 20190813

REACTIONS (3)
  - Decreased appetite [Unknown]
  - Dyspnoea [Unknown]
  - Abdominal discomfort [Unknown]
